FAERS Safety Report 5365033-X (Version None)
Quarter: 2007Q2

REPORT INFORMATION
  Report Type: 
  Country: None (occurrence: None)
  Receive Date: 20070621
  Receipt Date: 20070614
  Transmission Date: 20071010
  Serious: Yes (Other)
  Sender: FDA-Public Use
  Company Number: GB-JNJFOC-20070603707

PATIENT
  Age: 12 Year
  Sex: Male
  Weight: 34 kg

DRUGS (4)
  1. RISPERIDONE [Suspect]
     Indication: ANXIETY
     Route: 065
  2. RISPERIDONE [Suspect]
     Indication: AGGRESSION
     Route: 065
  3. FLUOXETINE [Concomitant]
     Indication: AUTISM
     Route: 048
  4. FLUOXETINE [Concomitant]
     Indication: ANXIETY
     Route: 048

REACTIONS (4)
  - HALLUCINATION [None]
  - NIGHTMARE [None]
  - RASH PRURITIC [None]
  - SEDATION [None]
